FAERS Safety Report 6939957-3 (Version None)
Quarter: 2010Q3

REPORT INFORMATION
  Report Type: 
  Country: None (occurrence: None)
  Receive Date: 20100825
  Receipt Date: 20100813
  Transmission Date: 20110219
  Serious: Yes (Hospitalization)
  Sender: FDA-Public Use
  Company Number: GB-PFIZER INC-2010102408

PATIENT
  Age: 44 Year
  Sex: Male
  Weight: 100 kg

DRUGS (11)
  1. LINEZOLID [Suspect]
     Indication: STAPHYLOCOCCAL INFECTION
     Dosage: 600 MG, 2X/DAY
     Route: 048
     Dates: start: 20100720, end: 20100803
  2. AMITRIPTYLINE [Concomitant]
     Dosage: UNK
  3. AZATHIOPRINE [Concomitant]
     Dosage: UNK
  4. CITALOPRAM [Concomitant]
     Dosage: UNK
  5. COTRIM [Concomitant]
     Dosage: UNK
  6. FLUCONAZOLE [Concomitant]
     Dosage: UNK
  7. OMEPRAZOLE [Concomitant]
     Dosage: UNK
  8. PARACETAMOL [Concomitant]
     Dosage: UNK
  9. PREDNISOLONE [Concomitant]
     Dosage: UNK
  10. PROGRAF [Concomitant]
     Dosage: UNK
  11. TAZOCIN [Concomitant]
     Dosage: UNK

REACTIONS (7)
  - ANAEMIA [None]
  - BODY TEMPERATURE INCREASED [None]
  - MALAISE [None]
  - NEUTROPENIA [None]
  - NEUTROPENIC SEPSIS [None]
  - NIGHT SWEATS [None]
  - WITHDRAWAL SYNDROME [None]
